FAERS Safety Report 8975369 (Version 2)
Quarter: 2012Q4

REPORT INFORMATION
  Report Type: 
  Country: CA (occurrence: CA)
  Receive Date: 20121219
  Receipt Date: 20121228
  Transmission Date: 20130627
  Serious: Yes (Life-Threatening)
  Sender: FDA-Public Use
  Company Number: PHHY2012CA116653

PATIENT
  Age: 31 Year
  Sex: Female

DRUGS (2)
  1. EXJADE [Suspect]
     Indication: IRON OVERLOAD
     Dosage: 1.5 g, dailt
     Route: 048
  2. EXJADE [Suspect]
     Indication: THALASSAEMIA

REACTIONS (1)
  - Cardiac failure [Recovered/Resolved with Sequelae]
